FAERS Safety Report 7627105-6 (Version None)
Quarter: 2011Q3

REPORT INFORMATION
  Report Type: 
  Country: None (occurrence: None)
  Receive Date: 20110721
  Receipt Date: 20110713
  Transmission Date: 20111222
  Serious: Yes (Hospitalization, Congenital Anomaly, Other)
  Sender: FDA-Public Use
  Company Number: US-PFIZER INC-2011160621

PATIENT
  Sex: Male

DRUGS (1)
  1. ZOLOFT [Suspect]
     Dosage: UNK
     Route: 064

REACTIONS (12)
  - MATERNAL EXPOSURE DURING PREGNANCY [None]
  - PULMONARY OEDEMA [None]
  - PATENT DUCTUS ARTERIOSUS [None]
  - CONGENITAL ARTERIAL MALFORMATION [None]
  - DACRYOSTENOSIS CONGENITAL [None]
  - ATELECTASIS [None]
  - FALLOT'S TETRALOGY [None]
  - RIGHT VENTRICLE OUTFLOW TRACT OBSTRUCTION [None]
  - TRICUSPID VALVE INCOMPETENCE [None]
  - ATRIAL SEPTAL DEFECT [None]
  - LAEVOCARDIA [None]
  - RIGHT AORTIC ARCH [None]
